FAERS Safety Report 4446320-6 (Version None)
Quarter: 2004Q3

REPORT INFORMATION
  Report Type: 
  Country: None (occurrence: None)
  Receive Date: 20040907
  Receipt Date: 20040824
  Transmission Date: 20050211
  Serious: Yes (Hospitalization)
  Sender: FDA-Public Use
  Company Number: AZAUS200400068

PATIENT
  Age: 65 Year
  Sex: Female
  Weight: 72 kg

DRUGS (7)
  1. VIDAZA [Suspect]
     Indication: MYELODYSPLASTIC SYNDROME
     Dosage: 75 MG/M2 (DAILY X 7 DAYS),  SUBCUTANEOUS
     Route: 058
     Dates: start: 20040728, end: 20040803
  2. LISINOPRIL [Concomitant]
  3. VALACYCLOVIR (VALACICLOVIR HYDROCHLORIDE) [Concomitant]
  4. ONDANSETRON HCL [Concomitant]
  5. ASPIRIN [Concomitant]
  6. GLIPIZIDE [Concomitant]
  7. ZESTRIL [Concomitant]

REACTIONS (1)
  - ARRHYTHMIA [None]
